FAERS Safety Report 10072040 (Version 1)
Quarter: 2014Q2

REPORT INFORMATION
  Report Type: Spontaneous
  Country: US (occurrence: None)
  Receive Date: 20140410
  Receipt Date: 20140410
  Transmission Date: 20141212
  Serious: No
  Sender: FDA-Public Use
  Company Number: None

PATIENT
  Age: 63 Year
  Sex: Male
  Weight: 71.67 kg

DRUGS (2)
  1. LOTEMAX [Suspect]
     Indication: EYE INFLAMMATION
     Route: 047
     Dates: start: 20131127, end: 20131227
  2. MULTIVITAMIN NATURE MADE [Concomitant]

REACTIONS (14)
  - Asthenia [None]
  - Epistaxis [None]
  - Secretion discharge [None]
  - Rhinorrhoea [None]
  - Paranasal sinus discomfort [None]
  - Dizziness [None]
  - Asthenia [None]
  - Hypogeusia [None]
  - Hyposmia [None]
  - Nasal odour [None]
  - Breath odour [None]
  - Fatigue [None]
  - Dysgeusia [None]
  - Dysgeusia [None]
